FAERS Safety Report 26148502 (Version 1)
Quarter: 2025Q4

REPORT INFORMATION
  Report Type: Report from Study
  Country: US (occurrence: US)
  Receive Date: 20251212
  Receipt Date: 20251212
  Transmission Date: 20260117
  Serious: Yes (Other)
  Sender: ABBVIE
  Company Number: US-ABBVIE-6573142

PATIENT
  Age: 66 Year
  Sex: Male
  Weight: 70.306 kg

DRUGS (10)
  1. VYALEV [Suspect]
     Active Substance: FOSCARBIDOPA\FOSLEVODOPA
     Indication: Parkinson^s disease
     Route: 058
     Dates: start: 20250516, end: 20251125
  2. VYALEV [Suspect]
     Active Substance: FOSCARBIDOPA\FOSLEVODOPA
     Route: 058
     Dates: start: 20251129
  3. LINZESS [Concomitant]
     Active Substance: LINACLOTIDE
     Indication: Constipation
  4. NOURIANZ [Concomitant]
     Active Substance: ISTRADEFYLLINE
     Indication: Parkinson^s disease
  5. CITALOPRAM [Concomitant]
     Active Substance: CITALOPRAM
     Indication: Depression
  6. CLONAZEPAM [Concomitant]
     Active Substance: CLONAZEPAM
     Indication: Sleep disorder
     Dosage: 3 TABLETS AT BED TIME
  7. RASAGILINE [Concomitant]
     Active Substance: RASAGILINE
     Indication: Parkinson^s disease
  8. RASAGILINE MESYLATE [Concomitant]
     Active Substance: RASAGILINE MESYLATE
     Indication: Product used for unknown indication
  9. CITALOPRAM HYDROBROMIDE [Concomitant]
     Active Substance: CITALOPRAM HYDROBROMIDE
     Indication: Product used for unknown indication
  10. TYLENOL EXTRA STRENGTH [Concomitant]
     Active Substance: ACETAMINOPHEN
     Indication: Product used for unknown indication

REACTIONS (14)
  - Wound haemorrhage [Unknown]
  - Speech disorder [Not Recovered/Not Resolved]
  - Gait disturbance [Recovering/Resolving]
  - Cognitive disorder [Recovered/Resolved]
  - Dyskinesia [Not Recovered/Not Resolved]
  - Cognitive disorder [Unknown]
  - Fall [Not Recovered/Not Resolved]
  - Head injury [Unknown]
  - Contusion [Unknown]
  - Abnormal dreams [Unknown]
  - Hallucination, auditory [Unknown]
  - Gait disturbance [Unknown]
  - Somnolence [Unknown]
  - Speech disorder [Unknown]

NARRATIVE: CASE EVENT DATE: 20250101
